FAERS Safety Report 23097908 (Version 2)
Quarter: 2023Q4

REPORT INFORMATION
  Report Type: Spontaneous
  Country: PL (occurrence: PL)
  Receive Date: 20231023
  Receipt Date: 20231117
  Transmission Date: 20240110
  Serious: Yes (Other)
  Sender: FDA-Public Use
  Company Number: PL-JNJFOC-20231036864

PATIENT
  Age: 66 Year
  Sex: Female

DRUGS (3)
  1. SPRAVATO [Suspect]
     Active Substance: ESKETAMINE
     Indication: Product used for unknown indication
     Dosage: THE PATIENT RECEIVED 5 DOSES OF THE DRUG, FIRST TWO ADMINISTRATIONS OF 2 DISPENSERS EACH.
  2. SPRAVATO [Suspect]
     Active Substance: ESKETAMINE
     Dosage: AT 3RD MEETING THE PATIENT HAD 3 DISPENSERS
  3. SPRAVATO [Suspect]
     Active Substance: ESKETAMINE
     Dosage: THE PATIENT HAD ANOTHER 2 APPLICATIONS OF 2 DISPENSERS

REACTIONS (5)
  - Drug dependence [Unknown]
  - Discomfort [Unknown]
  - Dizziness [Unknown]
  - Oral discomfort [Unknown]
  - Drug ineffective [Unknown]
